FAERS Safety Report 9842414 (Version 2)
Quarter: 2014Q1

REPORT INFORMATION
  Report Type: Spontaneous
  Country: US (occurrence: US)
  Receive Date: 20140124
  Receipt Date: 20140124
  Transmission Date: 20141002
  Serious: No
  Sender: FDA-Public Use
  Company Number: US-GILEAD-2011-0036485

PATIENT
  Sex: Female

DRUGS (6)
  1. RANEXA [Suspect]
     Indication: ANGINA PECTORIS
  2. PLAVIX [Concomitant]
  3. TENORMIN [Concomitant]
  4. ZOCOR [Concomitant]
  5. XANAX [Concomitant]
  6. VASOTEC [Concomitant]

REACTIONS (1)
  - Dizziness [Unknown]
